FAERS Safety Report 9203434 (Version 1)
Quarter: 2013Q2

REPORT INFORMATION
  Report Type: Spontaneous
  Country: GB (occurrence: GB)
  Receive Date: 20130402
  Receipt Date: 20130402
  Transmission Date: 20140414
  Serious: Yes (Disabling)
  Sender: FDA-Public Use
  Company Number: GB-PFIZER INC-GB8943026MAR2002

PATIENT
  Age: 49 Year
  Sex: Female
  Weight: 127.5 kg

DRUGS (6)
  1. IBUPROFEN [Suspect]
     Indication: DIABETES MELLITUS
     Dosage: 600.0 MG, 3X/DAY
     Route: 048
     Dates: start: 20020205, end: 20020215
  2. AVANDIA [Interacting]
     Indication: TYPE 2 DIABETES MELLITUS
     Dosage: 4 MG, 1X/DAY
     Route: 048
     Dates: start: 20010513, end: 20020312
  3. EPOGAM [Concomitant]
     Indication: ECZEMA
     Dosage: 80 MG, 3X/DAY
     Route: 048
     Dates: start: 1994
  4. LISINOPRIL [Concomitant]
     Indication: HYPERTENSION
     Dosage: 30 MG DAILY
     Route: 048
     Dates: start: 19980420
  5. METFORMIN [Concomitant]
     Indication: DIABETES MELLITUS
     Dosage: 850 MG, 3X/DAY
     Route: 048
     Dates: start: 20000128
  6. TIMOLOL [Concomitant]
     Indication: GLAUCOMA
     Dosage: UNK
     Route: 047
     Dates: start: 1994

REACTIONS (4)
  - Drug interaction [Unknown]
  - Dyspnoea [Recovering/Resolving]
  - Weight increased [Recovering/Resolving]
  - Oedema [Recovering/Resolving]
